FAERS Safety Report 4469287-3 (Version None)
Quarter: 2004Q4

REPORT INFORMATION
  Report Type: 
  Country: None (occurrence: None)
  Receive Date: 20041008
  Receipt Date: 20030910
  Transmission Date: 20050328
  Serious: No
  Sender: FDA-Public Use
  Company Number: US-BRISTOL-MYERS SQUIBB COMPANY-12379368

PATIENT
  Age: 68 Year
  Sex: Female
  Weight: 52 kg

DRUGS (8)
  1. AVAPRO [Suspect]
     Indication: HYPERTENSION
     Dosage: THERAPY START DATE 18-AUG-2003 PER PATIENT AND 19-AUG-2003 PER PHYSICIAN.
     Route: 048
     Dates: start: 20030801, end: 20030902
  2. EVISTA [Concomitant]
  3. ZOCOR [Concomitant]
     Dosage: TAKING DRUG FOR 3-5 YEARS
  4. MULTI-VITAMIN [Concomitant]
  5. CALCIUM [Concomitant]
  6. LECITHIN [Concomitant]
  7. VITAMIN E [Concomitant]
  8. VITAMIN C [Concomitant]

REACTIONS (2)
  - BETA 2 MICROGLOBULIN INCREASED [None]
  - BLOOD IMMUNOGLOBULIN G DECREASED [None]
